FAERS Safety Report 13693984 (Version 1)
Quarter: 2017Q2

REPORT INFORMATION
  Report Type: Spontaneous
  Country: US (occurrence: US)
  Receive Date: 20170627
  Receipt Date: 20170627
  Transmission Date: 20170830
  Serious: No
  Sender: FDA-Public Use
  Company Number: None

PATIENT
  Age: 72 Year
  Sex: Female
  Weight: 74.91 kg

DRUGS (1)
  1. ZALEPLON 10MG CAP TEVA (GENERIC FOR SONATA ) [Suspect]
     Active Substance: ZALEPLON
     Indication: SLEEP DISORDER THERAPY
     Dosage: 1 AT NIT
     Route: 048
     Dates: start: 20170426, end: 20170426

REACTIONS (1)
  - Poor quality sleep [None]

NARRATIVE: CASE EVENT DATE: 20170426
